FAERS Safety Report 6999447-9 (Version None)
Quarter: 2010Q3

REPORT INFORMATION
  Report Type: 
  Country: None (occurrence: None)
  Receive Date: 20100920
  Receipt Date: 20100914
  Transmission Date: 20110219
  Serious: Yes (Hospitalization, Other)
  Sender: FDA-Public Use
  Company Number: US-PERRIGO-10US012891

PATIENT
  Sex: Female
  Weight: 70.295 kg

DRUGS (7)
  1. ACETAMINOPHEN [Suspect]
     Indication: MUSCULOSKELETAL PAIN
     Dosage: 1000 MG, BID
     Route: 048
     Dates: start: 20100801, end: 20100909
  2. WARFARIN [Suspect]
     Indication: ATRIAL FIBRILLATION
     Dosage: 4 MG, QD
     Route: 048
     Dates: end: 20100908
  3. WARFARIN [Suspect]
     Dosage: UNK
     Route: 048
     Dates: start: 20100914
  4. FUROSEMIDE [Concomitant]
     Indication: CARDIAC DISORDER
     Dosage: 20 MG, QD
     Route: 048
  5. LISINOPRIL [Concomitant]
     Indication: CARDIAC DISORDER
     Dosage: 10 MG, QD
     Route: 048
  6. METOPROLOL [Concomitant]
     Indication: CARDIAC DISORDER
     Dosage: 50 MG, BID
     Route: 048
  7. SIMVASTATIN [Concomitant]
     Indication: BLOOD CHOLESTEROL INCREASED
     Dosage: UNK, HS
     Route: 048

REACTIONS (7)
  - CHEST DISCOMFORT [None]
  - CORONARY ARTERY OCCLUSION [None]
  - DRUG INTERACTION [None]
  - DYSPNOEA [None]
  - INCORRECT DRUG ADMINISTRATION DURATION [None]
  - PAIN IN EXTREMITY [None]
  - PROTHROMBIN TIME PROLONGED [None]
